FAERS Safety Report 20742949 (Version 3)
Quarter: 2024Q1

REPORT INFORMATION
  Report Type: Other
  Country: AU (occurrence: AU)
  Receive Date: 20220425
  Receipt Date: 20240208
  Transmission Date: 20240409
  Serious: Yes (Other)
  Sender: FDA-Public Use
  Company Number: AU-TOLMAR, INC.-22AU032570

PATIENT
  Sex: Male

DRUGS (1)
  1. ELIGARD [Suspect]
     Active Substance: LEUPROLIDE ACETATE
     Indication: Prostate cancer
     Dosage: 45 MILLIGRAM, Q 6 MONTH

REACTIONS (6)
  - Arthritis [Unknown]
  - Coeliac disease [Unknown]
  - Burning sensation [Unknown]
  - Gait inability [Unknown]
  - Weight increased [Unknown]
  - Hot flush [Not Recovered/Not Resolved]
